FAERS Safety Report 7793119-9 (Version None)
Quarter: 2011Q4

REPORT INFORMATION
  Report Type: 
  Country: None (occurrence: None)
  Receive Date: 20111003
  Receipt Date: 20110926
  Transmission Date: 20120403
  Serious: Yes (Life-Threatening, Hospitalization)
  Sender: FDA-Public Use
  Company Number: US-CELGENEUS-163-AB007-11093400

PATIENT
  Sex: Female
  Weight: 95.1 kg

DRUGS (26)
  1. HYDROCODONE BITARTRATE AND ACETAMINOPHEN [Concomitant]
     Indication: MYALGIA
  2. LYRICA [Concomitant]
     Route: 048
     Dates: start: 20110303
  3. ABRAXANE [Suspect]
     Indication: METASTATIC MALIGNANT MELANOMA
     Dosage: 150 MILLIGRAM/SQ. METER
     Route: 041
     Dates: start: 20110113
  4. MEDROL [Concomitant]
     Indication: RASH
     Route: 048
     Dates: start: 20110204
  5. ZOFRAN [Concomitant]
     Route: 048
     Dates: start: 20110303, end: 20110811
  6. BACTRIM [Concomitant]
     Indication: URINARY TRACT INFECTION
     Route: 048
     Dates: start: 20110113, end: 20110118
  7. CALCIUM CARBONATE [Concomitant]
     Route: 048
     Dates: start: 20110116
  8. PROCHLORPERAZINE [Concomitant]
     Indication: NAUSEA
     Route: 048
     Dates: start: 20100113
  9. ZITHROMAX [Concomitant]
     Indication: BRONCHITIS
     Route: 048
     Dates: start: 20110125, end: 20110130
  10. VENTOLIN HFA [Concomitant]
     Indication: BRONCHITIS
     Route: 055
     Dates: start: 20110125, end: 20110129
  11. NAPROXEN (ALEVE) [Concomitant]
     Indication: HEADACHE
     Route: 048
     Dates: start: 20110201
  12. MUCINEX [Concomitant]
     Route: 048
     Dates: start: 20110727
  13. CEPACOL [Concomitant]
     Route: 048
     Dates: start: 20110728
  14. ATIVAN [Concomitant]
     Indication: NAUSEA
     Route: 048
     Dates: start: 20110811
  15. LORAZEPAM [Concomitant]
     Indication: PROPHYLAXIS
     Route: 048
     Dates: start: 20110109, end: 20110109
  16. PROMETHAZINE [Concomitant]
     Indication: COUGH
     Route: 048
     Dates: start: 20110125, end: 20110201
  17. CHLORASEPTIC [Concomitant]
     Route: 048
     Dates: start: 20110728
  18. BACTRIM [Concomitant]
     Indication: KIDNEY INFECTION
     Route: 065
     Dates: start: 20110103, end: 20110108
  19. ABRAXANE [Suspect]
     Dosage: 90 MILLIGRAM/SQ. METER
     Route: 041
     Dates: start: 20110825, end: 20110825
  20. OMEPRAZOLE [Concomitant]
     Route: 048
     Dates: start: 20070101
  21. HYDROCODONE BITARTRATE AND ACETAMINOPHEN [Concomitant]
     Indication: PAIN
     Route: 048
     Dates: start: 20100103
  22. TYLENOL-500 [Concomitant]
     Route: 048
     Dates: start: 20110125, end: 20110125
  23. CETIRIZINE HCL [Concomitant]
     Indication: RASH
     Route: 048
     Dates: start: 20110203
  24. ALBUTEROL [Concomitant]
     Indication: BRONCHITIS
     Route: 055
     Dates: start: 20110125
  25. PERCOCET [Concomitant]
     Indication: HEADACHE
     Route: 048
     Dates: start: 20110127, end: 20110130
  26. IBUPROFEN [Concomitant]
     Route: 048
     Dates: start: 20110616

REACTIONS (1)
  - INTRACRANIAL TUMOUR HAEMORRHAGE [None]
